FAERS Safety Report 9519133 (Version 1)
Quarter: 2013Q1

REPORT INFORMATION
  Report Type: Spontaneous
  Country: US (occurrence: None)
  Receive Date: 20130305
  Receipt Date: 20130305
  Transmission Date: 20140127
  Serious: Yes (Death)
  Sender: FDA-Public Use
  Company Number: 163-21880-12010408

PATIENT
  Age: 91 Year
  Sex: Female

DRUGS (11)
  1. REVLIMID [Suspect]
     Indication: MYELODYSPLASTIC SYNDROME
     Route: 048
     Dates: start: 20111027, end: 2011
  2. CENTRUM SILVER (CENTRUM SILVER) (TABLETS) [Concomitant]
  3. CIPROFLOXACIN (CIPROFLOXACIN) (TABLETS) [Concomitant]
  4. KETOROLAC (KETOROLAC) (TABLETS) [Concomitant]
  5. LOPRESSOR (METOPROLOL TARTRATE) [Concomitant]
  6. K-DUR (POTASSIUM CHLORIDE) (TABLETS) [Concomitant]
  7. PREDNISONE SULFATE (ISOPTO CETAPRED) (SOLUTION) [Concomitant]
  8. PRESERVISION (PRESERVISION EYE VITAMIN AND MINERAL SUPPL.) (CAPSULES) [Concomitant]
  9. PRILOSEC (OMEPRAZOLE) (CAPSULES) [Concomitant]
  10. VIGAMOX (MOXIFLOXACIN HYDROCHLORIDE) [Concomitant]
  11. LASIX (FUROSEMIDE) [Concomitant]

REACTIONS (1)
  - Pneumonia [None]
